FAERS Safety Report 5995883-8 (Version None)
Quarter: 2008Q4

REPORT INFORMATION
  Report Type: 
  Country: None (occurrence: None)
  Receive Date: 20081212
  Receipt Date: 20081202
  Transmission Date: 20090506
  Serious: Yes (Other)
  Sender: FDA-Public Use
  Company Number: JP-PFIZER INC-2008151590

PATIENT

DRUGS (1)
  1. VFEND [Suspect]
     Dosage: 130 MG, 2X/DAY
     Route: 042

REACTIONS (1)
  - RETINAL VEIN OCCLUSION [None]
